FAERS Safety Report 12322270 (Version 1)
Quarter: 2016Q2

REPORT INFORMATION
  Report Type: Spontaneous
  Country: US (occurrence: US)
  Receive Date: 20160502
  Receipt Date: 20160502
  Transmission Date: 20160815
  Serious: No
  Sender: FDA-Public Use
  Company Number: US-WARNER CHILCOTT, LLC-1051262

PATIENT
  Age: 70 Year
  Sex: Female
  Weight: 62.73 kg

DRUGS (3)
  1. VITAMIN D [Concomitant]
     Active Substance: CHOLECALCIFEROL
  2. CALCIUM MAGNESIUM [Concomitant]
     Active Substance: CALCIUM\MAGNESIUM
  3. ACTONEL [Suspect]
     Active Substance: RISEDRONATE SODIUM
     Indication: OSTEOPOROSIS
     Route: 048
     Dates: start: 20150402, end: 20150427

REACTIONS (4)
  - Oropharyngeal pain [Recovered/Resolved]
  - Tongue ulceration [Recovered/Resolved]
  - Glossodynia [Recovered/Resolved]
  - Dry mouth [Recovered/Resolved]
